FAERS Safety Report 17902171 (Version 5)
Quarter: 2021Q1

REPORT INFORMATION
  Report Type: Spontaneous
  Country: CA (occurrence: CA)
  Receive Date: 20200616
  Receipt Date: 20210223
  Transmission Date: 20210419
  Serious: Yes (Other)
  Sender: FDA-Public Use
  Company Number: CA-PFIZER INC-2020232901

PATIENT
  Age: 53 Year
  Sex: Male

DRUGS (6)
  1. XELJANZ [Suspect]
     Active Substance: TOFACITINIB CITRATE
     Dosage: 5 MG, 2X/DAY
     Route: 048
     Dates: start: 202006, end: 2020
  2. XELJANZ [Suspect]
     Active Substance: TOFACITINIB CITRATE
     Dosage: 10 MG, 2X/DAY
     Route: 048
     Dates: start: 2020
  3. ASACOL [Concomitant]
     Active Substance: MESALAMINE
     Dosage: 4 DF, 2X/DAY
  4. XELJANZ [Suspect]
     Active Substance: TOFACITINIB CITRATE
     Indication: COLITIS ULCERATIVE
     Dosage: 10 MG, 2X/DAY
     Route: 048
     Dates: start: 20200422, end: 202006
  5. PREDNISONE. [Concomitant]
     Active Substance: PREDNISONE
     Dosage: 5 MG, DAILY
  6. ENTYVIO [Concomitant]
     Active Substance: VEDOLIZUMAB
     Dosage: 1 DF

REACTIONS (5)
  - Colitis [Unknown]
  - Rectal haemorrhage [Unknown]
  - Drug ineffective [Unknown]
  - Condition aggravated [Unknown]
  - Frequent bowel movements [Unknown]

NARRATIVE: CASE EVENT DATE: 202007
